FAERS Safety Report 6837514-0 (Version None)
Quarter: 2010Q3

REPORT INFORMATION
  Report Type: 
  Country: None (occurrence: None)
  Receive Date: 20100713
  Receipt Date: 20070514
  Transmission Date: 20110219
  Serious: No
  Sender: FDA-Public Use
  Company Number: US-PFIZER INC-2007039918

PATIENT
  Age: 54 Year
  Sex: Female
  Weight: 95.454 kg

DRUGS (1)
  1. CHANTIX [Suspect]
     Indication: SMOKING CESSATION THERAPY
     Route: 048
     Dates: start: 20070505

REACTIONS (3)
  - ANXIETY [None]
  - HYPERVENTILATION [None]
  - NAUSEA [None]
